FAERS Safety Report 5587721-2 (Version None)
Quarter: 2008Q1

REPORT INFORMATION
  Report Type: 
  Country: None (occurrence: None)
  Receive Date: 20080108
  Receipt Date: 20071229
  Transmission Date: 20080703
  Serious: Yes (Hospitalization)
  Sender: FDA-Public Use
  Company Number: 2007-04372

PATIENT
  Age: 74 Year
  Sex: Female
  Weight: 65.7 kg

DRUGS (2)
  1. VELCADE [Suspect]
     Indication: NEOPLASM
     Dosage: 2.40 MG,
     Dates: start: 20050415, end: 20050428
  2. PREDNISONE [Concomitant]

REACTIONS (14)
  - ANOREXIA [None]
  - BRAIN OEDEMA [None]
  - BRONCHITIS [None]
  - CHEST PAIN [None]
  - DEHYDRATION [None]
  - DYSPNOEA [None]
  - HYPOTENSION [None]
  - METASTASES TO CENTRAL NERVOUS SYSTEM [None]
  - MUSCULAR WEAKNESS [None]
  - NAUSEA [None]
  - ORTHOSTATIC HYPOTENSION [None]
  - PHARYNGOLARYNGEAL PAIN [None]
  - RHINITIS SEASONAL [None]
  - URINARY TRACT INFECTION [None]
